FAERS Safety Report 9034030 (Version 1)
Quarter: 2013Q1

REPORT INFORMATION
  Report Type: Spontaneous
  Country: US (occurrence: None)
  Receive Date: 20130116
  Receipt Date: 20130116
  Transmission Date: 20140127
  Serious: Yes (Hospitalization)
  Sender: FDA-Public Use
  Company Number: None

PATIENT
  Age: 30 Year
  Sex: Female
  Weight: 68.04 kg

DRUGS (1)
  1. H.P. ACTHAR [Suspect]
     Indication: MULTIPLE SCLEROSIS RELAPSE
     Dosage: 80 U  IM QD
     Route: 030
     Dates: start: 20130107, end: 20130110

REACTIONS (2)
  - Palpitations [None]
  - Arrhythmia [None]
